FAERS Safety Report 7104979-9 (Version None)
Quarter: 2010Q4

REPORT INFORMATION
  Report Type: 
  Country: None (occurrence: None)
  Receive Date: 20101116
  Receipt Date: 20101103
  Transmission Date: 20110411
  Serious: Yes (Other)
  Sender: FDA-Public Use
  Company Number: PHFR2010GB04507

PATIENT
  Sex: Male

DRUGS (1)
  1. CLOZARIL [Suspect]
     Indication: SCHIZOPHRENIA
     Dosage: 450 MG
     Route: 048
     Dates: start: 20051104

REACTIONS (2)
  - METASTATIC BRONCHIAL CARCINOMA [None]
  - REFUSAL OF TREATMENT BY PATIENT [None]
